FAERS Safety Report 16764962 (Version 1)
Quarter: 2019Q3

REPORT INFORMATION
  Report Type: Spontaneous
  Country: JP (occurrence: JP)
  Receive Date: 20190903
  Receipt Date: 20190903
  Transmission Date: 20191005
  Serious: No
  Sender: FDA-Public Use
  Company Number: JP-LUPIN PHARMACEUTICALS INC.-2018-08672

PATIENT
  Age: 9 Decade
  Sex: Female
  Weight: 43 kg

DRUGS (3)
  1. SULPIRIDE [Suspect]
     Active Substance: SULPIRIDE
     Indication: PSYCHOMOTOR HYPERACTIVITY
     Dosage: 30 MG, UNK
     Route: 065
  2. MEMANTINE. [Suspect]
     Active Substance: MEMANTINE
     Indication: PSYCHOMOTOR HYPERACTIVITY
     Dosage: 10 MG, UNK
     Route: 065
  3. MAPROTILINE [Suspect]
     Active Substance: MAPROTILINE
     Indication: PSYCHOMOTOR HYPERACTIVITY
     Dosage: 10 MG, UNK
     Route: 065

REACTIONS (2)
  - Hyperprolactinaemia [Recovered/Resolved]
  - Drug ineffective [Unknown]
